FAERS Safety Report 14493966 (Version 1)
Quarter: 2018Q1

REPORT INFORMATION
  Report Type: Spontaneous
  Country: US (occurrence: US)
  Receive Date: 20180206
  Receipt Date: 20180206
  Transmission Date: 20180509
  Serious: No
  Sender: FDA-Public Use
  Company Number: US-VIFOR (INTERNATIONAL) INC.-VIT-2018-01316

PATIENT
  Sex: Female

DRUGS (14)
  1. AMLODIPINE BESILATE [Concomitant]
     Active Substance: AMLODIPINE BESYLATE
  2. CYANOCOBALAMIN. [Concomitant]
     Active Substance: CYANOCOBALAMIN
  3. KIONEX [Concomitant]
     Active Substance: SODIUM POLYSTYRENE SULFONATE
  4. NEORAL [Concomitant]
     Active Substance: CYCLOSPORINE
  5. ZEMPLAR [Concomitant]
     Active Substance: PARICALCITOL
  6. ACETYLSALICYLIC ACID [Concomitant]
     Active Substance: ASPIRIN
     Dosage: ADULT LOW DOSE
  7. LEVOTHYROXINE SODIUM. [Concomitant]
     Active Substance: LEVOTHYROXINE SODIUM
  8. TRIMETHOPRIM. [Concomitant]
     Active Substance: TRIMETHOPRIM
  9. CLONIDINE HYDROCHLORIDE. [Concomitant]
     Active Substance: CLONIDINE HYDROCHLORIDE
  10. PANTOPRAZOLE SODIUM SESQUIHYDRATE [Concomitant]
     Active Substance: PANTOPRAZOLE SODIUM
  11. VELTASSA [Suspect]
     Active Substance: PATIROMER
     Indication: HYPERKALAEMIA
     Dates: start: 20161231
  12. ATORVASTATIN CALCIUM. [Concomitant]
     Active Substance: ATORVASTATIN CALCIUM
  13. MYFORTIC [Concomitant]
     Active Substance: MYCOPHENOLATE SODIUM
  14. LANTUS [Concomitant]
     Active Substance: INSULIN GLARGINE

REACTIONS (2)
  - Nasopharyngitis [Unknown]
  - Drug dose omission [Unknown]
